FAERS Safety Report 20954348 (Version 2)
Quarter: 2022Q3

REPORT INFORMATION
  Report Type: Report from Study
  Country: US (occurrence: US)
  Receive Date: 20220614
  Receipt Date: 20220808
  Transmission Date: 20221027
  Serious: Yes (Hospitalization)
  Sender: FDA-Public Use
  Company Number: US-GLAXOSMITHKLINE-US2022AMR092288

PATIENT
  Sex: Female
  Weight: 81.633 kg

DRUGS (1)
  1. NIRAPARIB [Suspect]
     Active Substance: NIRAPARIB
     Indication: Ovarian cancer
     Dosage: 300 MG, QD
     Dates: start: 20220419

REACTIONS (7)
  - Anaemia [Recovered/Resolved]
  - Pruritus [Not Recovered/Not Resolved]
  - Fatigue [Recovered/Resolved]
  - Energy increased [Unknown]
  - Insomnia [Recovering/Resolving]
  - Dizziness [Not Recovered/Not Resolved]
  - Suffocation feeling [Unknown]
